FAERS Safety Report 15514850 (Version 1)
Quarter: 2018Q4

REPORT INFORMATION
  Report Type: Spontaneous
  Country: US (occurrence: US)
  Receive Date: 20181017
  Receipt Date: 20181017
  Transmission Date: 20190205
  Serious: No
  Sender: FDA-Public Use
  Company Number: US-ROMARKLABS-2018-US-000070

PATIENT
  Age: 57 Year
  Sex: Female

DRUGS (1)
  1. ALINIA [Suspect]
     Active Substance: NITAZOXANIDE
     Indication: IRRITABLE BOWEL SYNDROME
     Dosage: 2 TABLETS TWICE DAILY
     Route: 048
     Dates: start: 20171129

REACTIONS (1)
  - Rash [Unknown]

NARRATIVE: CASE EVENT DATE: 201801
